FAERS Safety Report 7820828-5 (Version None)
Quarter: 2011Q4

REPORT INFORMATION
  Report Type: 
  Country: None (occurrence: None)
  Receive Date: 20111018
  Receipt Date: 20111006
  Transmission Date: 20120403
  Serious: Yes (Hospitalization)
  Sender: FDA-Public Use
  Company Number: JP-ELI_LILLY_AND_COMPANY-JP201109001550

PATIENT
  Sex: Female
  Weight: 54 kg

DRUGS (6)
  1. PAXIL [Concomitant]
     Indication: DEPRESSIVE SYMPTOM
     Dosage: 10 MG, UNK
     Route: 048
     Dates: start: 20110624, end: 20110808
  2. METFFORMIN HYDROCHLORIDE [Concomitant]
     Indication: TYPE 2 DIABETES MELLITUS
     Dosage: 750 MG, UNK
     Route: 048
     Dates: start: 20070301
  3. HUMALOG MIX 75/25 [Suspect]
     Indication: TYPE 2 DIABETES MELLITUS
     Dosage: 24 IU, UNK
     Route: 058
  4. PRAVASTATIN SODIUM [Concomitant]
     Dosage: 10 MG, UNK
     Route: 048
     Dates: start: 20090301
  5. BYETTA [Suspect]
     Indication: TYPE 2 DIABETES MELLITUS
     Dosage: 5 UG, BID
     Route: 058
     Dates: start: 20110708, end: 20110805
  6. OLMESARTAN MEDOXOMIL [Concomitant]
     Dosage: 20 MG, UNK
     Route: 048
     Dates: start: 20100401

REACTIONS (5)
  - WEIGHT DECREASED [None]
  - DEPRESSIVE SYMPTOM [None]
  - HYPOGLYCAEMIA [None]
  - NASOPHARYNGITIS [None]
  - DECREASED APPETITE [None]
